FAERS Safety Report 11220230 (Version 3)
Quarter: 2017Q1

REPORT INFORMATION
  Report Type: Spontaneous
  Country: DE (occurrence: DE)
  Receive Date: 20150625
  Receipt Date: 20170201
  Transmission Date: 20170428
  Serious: Yes (Death, Hospitalization, Other)
  Sender: FDA-Public Use
  Company Number: DE-EXELIXIS-CABO-15005360

PATIENT
  Age: 44 Year
  Sex: Male
  Weight: 76 kg

DRUGS (10)
  1. TORASEMID [Concomitant]
     Active Substance: TORSEMIDE
  2. ASPIRIN. [Concomitant]
     Active Substance: ASPIRIN
  3. L-THYROXIN [Concomitant]
     Active Substance: LEVOTHYROXINE SODIUM
  4. PANTOZOL [Concomitant]
     Active Substance: PANTOPRAZOLE SODIUM
  5. ALENDRONIC ACID [Concomitant]
     Active Substance: ALENDRONIC ACID
  6. DEXAMETHASONE. [Concomitant]
     Active Substance: DEXAMETHASONE
  7. NEBILET [Concomitant]
     Active Substance: NEBIVOLOL
  8. KEPPRA [Concomitant]
     Active Substance: LEVETIRACETAM
  9. SUNITINIB [Concomitant]
     Active Substance: SUNITINIB
  10. COMETRIQ [Suspect]
     Active Substance: CABOZANTINIB S-MALATE
     Indication: MEDULLARY THYROID CANCER
     Dosage: 60 MG, QD
     Route: 048
     Dates: start: 201411, end: 20150409

REACTIONS (4)
  - Pulmonary embolism [Unknown]
  - Malignant neoplasm progression [Fatal]
  - Deep vein thrombosis [Unknown]
  - Pneumonia [Unknown]

NARRATIVE: CASE EVENT DATE: 2015
